FAERS Safety Report 21837142 (Version 3)
Quarter: 2023Q1

REPORT INFORMATION
  Report Type: Spontaneous
  Country: DE (occurrence: DE)
  Receive Date: 20230109
  Receipt Date: 20230330
  Transmission Date: 20230417
  Serious: Yes (Other)
  Sender: FDA-Public Use
  Company Number: DE-VIIV HEALTHCARE LIMITED-DE2023EME000566

PATIENT

DRUGS (5)
  1. CABOTEGRAVIR [Suspect]
     Active Substance: CABOTEGRAVIR
     Indication: HIV infection CDC Group III
     Dosage: 600 MG, Z
     Dates: start: 20220715
  2. RILPIVIRINE [Suspect]
     Active Substance: RILPIVIRINE
     Indication: HIV infection CDC Group III
     Dosage: 900 MG, Z( EVERY 2 MONTHS)
     Dates: start: 20220715
  3. ATAZANAVIR\RITONAVIR [Concomitant]
     Active Substance: ATAZANAVIR\RITONAVIR
     Indication: Antiviral treatment
     Dosage: UNK
  4. LAMIVUDINE [Concomitant]
     Active Substance: LAMIVUDINE
     Indication: Antiviral treatment
     Dosage: UNK
  5. TENOFOVIR [Concomitant]
     Active Substance: TENOFOVIR
     Indication: Antiviral treatment
     Dosage: UNK

REACTIONS (4)
  - Pathogen resistance [Not Recovered/Not Resolved]
  - Virologic failure [Recovering/Resolving]
  - Viral mutation identified [Recovered/Resolved with Sequelae]
  - Product use issue [Unknown]
